FAERS Safety Report 7967031-6 (Version None)
Quarter: 2011Q4

REPORT INFORMATION
  Report Type: 
  Country: None (occurrence: None)
  Receive Date: 20111207
  Receipt Date: 20111207
  Transmission Date: 20120403
  Serious: Yes (Hospitalization)
  Sender: FDA-Public Use
  Company Number: None

PATIENT
  Age: 69 Year
  Sex: Male
  Weight: 57.2 kg

DRUGS (1)
  1. SULFAMETHOXAZOLE AND TRIMETHOPRIM [Suspect]
     Indication: URINARY TRACT INFECTION
     Dosage: 1 TAB BID PO
     Route: 048
     Dates: start: 20110809, end: 20110902

REACTIONS (7)
  - NEUTROPENIA [None]
  - VITAMIN B12 DECREASED [None]
  - LEUKOPENIA [None]
  - HYPOPHAGIA [None]
  - THROMBOCYTOPENIA [None]
  - HYPOTENSION [None]
  - BLOOD FOLATE DECREASED [None]
